FAERS Safety Report 13120318 (Version 1)
Quarter: 2017Q1

REPORT INFORMATION
  Report Type: Spontaneous
  Country: US (occurrence: US)
  Receive Date: 20170113
  Receipt Date: 20170113
  Transmission Date: 20170428
  Serious: Yes (Hospitalization)
  Sender: FDA-Public Use
  Company Number: None

PATIENT
  Sex: Female

DRUGS (9)
  1. TASIGNA [Suspect]
     Active Substance: NILOTINIB
     Indication: CHRONIC MYELOID LEUKAEMIA
     Route: 048
     Dates: start: 20100831
  2. PLAVIX [Concomitant]
     Active Substance: CLOPIDOGREL BISULFATE
  3. CALCITRIOL. [Concomitant]
     Active Substance: CALCITRIOL
  4. DIGOX [Concomitant]
     Active Substance: DIGOXIN
  5. HUMULIN NOS [Concomitant]
     Active Substance: INSULIN HUMAN
  6. HYDRALAZINE [Concomitant]
     Active Substance: HYDRALAZINE HYDROCHLORIDE
  7. IMDUR [Concomitant]
     Active Substance: ISOSORBIDE MONONITRATE
  8. ZOLO [Concomitant]
  9. LIPITOR [Concomitant]
     Active Substance: ATORVASTATIN CALCIUM

REACTIONS (2)
  - Hypoglycaemia [None]
  - Drug dose omission [None]
